FAERS Safety Report 7891206 (Version 6)
Quarter: 2012Q4

REPORT INFORMATION
  Report Type: Report from Study
  Country: CA (occurrence: CA)
  Receive Date: 20110408
  Receipt Date: 20120928
  Transmission Date: 20130627
  Serious: Yes (Death, Hospitalization, Other)
  Sender: FDA-Public Use
  Company Number: CA-ROCHE-768549

PATIENT
  Age: 41 Year
  Sex: Male
  Weight: 98.97 kg

DRUGS (9)
  1. ACETAMINOPHEN [Concomitant]
     Indication: PREMEDICATION
     Dosage: TAKEN ONCE
     Route: 048
     Dates: start: 20110318, end: 20110318
  2. METHYLPREDNISOLONE [Concomitant]
     Indication: PREMEDICATION
     Dosage: TAKEN ONCE
     Route: 042
     Dates: start: 20110318, end: 20110318
  3. AVASTIN [Suspect]
     Indication: GLIOBLASTOMA
     Route: 042
     Dates: start: 20110318, end: 20110603
  4. DECADRON [Concomitant]
     Dosage: DOSE: 4 QID
     Route: 065
  5. DILANTIN [Concomitant]
     Route: 065
  6. FRISIUM [Concomitant]
     Dosage: dose: 5 mg QD
     Route: 065
  7. PANTOLOC [Concomitant]
     Dosage: dose: 40 mg QD
     Route: 065
  8. ZOFRAN [Concomitant]
     Dosage: 6-8 MG IN AM
     Route: 065
  9. DIPHENHYDRAMINE HYDROCHLORIDE [Concomitant]
     Indication: PREMEDICATION
     Dosage: TAKEN ONCE
     Route: 048
     Dates: start: 20110318, end: 20110318

REACTIONS (9)
  - Death [Fatal]
  - Vomiting [Recovering/Resolving]
  - Balance disorder [Recovering/Resolving]
  - Neoplasm [Not Recovered/Not Resolved]
  - Disease progression [Not Recovered/Not Resolved]
  - Constipation [Not Recovered/Not Resolved]
  - Blood sodium increased [Unknown]
  - Gait disturbance [Not Recovered/Not Resolved]
  - Platelet count decreased [Unknown]
